FAERS Safety Report 8614582 (Version 3)
Quarter: 2012Q4

REPORT INFORMATION
  Report Type: Spontaneous
  Country: BR (occurrence: None)
  Receive Date: 20120531
  Receipt Date: 20120820
  Transmission Date: 20130627
  Serious: Yes (Hospitalization)
  Sender: FDA-Public Use
  Company Number: 2012-2341

PATIENT
  Age: 61 Year
  Sex: Female

DRUGS (9)
  1. DYSPORT [Suspect]
     Indication: SKIN WRINKLING
     Dosage: 4 UNITS (4 UNITS,SINGLE CYCLE), INTRAMUSCULAR, 56 UNITS (56 UNITS,SINGLE CYCLE),INTRAMUSCULAR
     Route: 030
     Dates: start: 20120210, end: 20120210
  2. DYSPORT [Suspect]
     Indication: SKIN WRINKLING
     Dosage: 4 UNITS (4 UNITS,SINGLE CYCLE), INTRAMUSCULAR, 56 UNITS (56 UNITS,SINGLE CYCLE),INTRAMUSCULAR
     Route: 030
     Dates: start: 20120210, end: 20120210
  3. DYSPORT [Suspect]
     Indication: SKIN WRINKLING
     Dosage: 4 UNITS (4 UNITS,SINGLE CYCLE), INTRAMUSCULAR, 56 UNITS (56 UNITS,SINGLE CYCLE),INTRAMUSCULAR
     Route: 030
     Dates: start: 20120210, end: 20120210
  4. DYSPORT [Suspect]
     Indication: OFF LABEL USE
     Dosage: 4 UNITS (4 UNITS,SINGLE CYCLE), INTRAMUSCULAR, 56 UNITS (56 UNITS,SINGLE CYCLE),INTRAMUSCULAR
     Route: 030
     Dates: start: 20120210, end: 20120210
  5. DYSPORT [Suspect]
     Indication: SKIN WRINKLING
     Dosage: 4 UNITS (4 UNITS,SINGLE CYCLE), INTRAMUSCULAR, 56 UNITS (56 UNITS,SINGLE CYCLE),INTRAMUSCULAR
     Route: 030
     Dates: start: 20120127, end: 20120127
  6. DYSPORT [Suspect]
     Indication: SKIN WRINKLING
     Dosage: 4 UNITS (4 UNITS,SINGLE CYCLE), INTRAMUSCULAR, 56 UNITS (56 UNITS,SINGLE CYCLE),INTRAMUSCULAR
     Route: 030
     Dates: start: 20120127, end: 20120127
  7. DYSPORT [Suspect]
     Indication: SKIN WRINKLING
     Dosage: 4 UNITS (4 UNITS,SINGLE CYCLE), INTRAMUSCULAR, 56 UNITS (56 UNITS,SINGLE CYCLE),INTRAMUSCULAR
     Route: 030
     Dates: start: 20120127, end: 20120127
  8. DYSPORT [Suspect]
     Indication: OFF LABEL USE
     Dosage: 4 UNITS (4 UNITS,SINGLE CYCLE), INTRAMUSCULAR, 56 UNITS (56 UNITS,SINGLE CYCLE),INTRAMUSCULAR
     Route: 030
     Dates: start: 20120127, end: 20120127
  9. METHYL METHACRYLATE [Suspect]
     Indication: PRODUCT USED FOR UNKNOWN INDICATION

REACTIONS (2)
  - TOOTH EXTRACTION [None]
  - CELLULITIS [None]
